FAERS Safety Report 10345767 (Version 4)
Quarter: 2014Q3

REPORT INFORMATION
  Report Type: Spontaneous
  Country: CN (occurrence: None)
  Receive Date: 20140723
  Receipt Date: 20140801
  Transmission Date: 20150326
  Serious: Yes (Death, Other)
  Sender: FDA-Public Use
  Company Number: 7307059

PATIENT
  Age: 68 Year
  Sex: Female

DRUGS (1)
  1. EUTHYROX [Suspect]
     Active Substance: LEVOTHYROXINE SODIUM
     Indication: POST PROCEDURAL HYPOTHYROIDISM
     Route: 048
     Dates: start: 20140411, end: 20140710

REACTIONS (13)
  - Myocardial infarction [None]
  - Syncope [None]
  - Myocardial ischaemia [None]
  - Endocrine disorder [None]
  - Amaurosis [None]
  - Asthenia [None]
  - Hyperhidrosis [None]
  - Fall [None]
  - Tremor [None]
  - Joint swelling [None]
  - Palpitations [None]
  - Overdose [None]
  - Circulatory collapse [None]

NARRATIVE: CASE EVENT DATE: 20140710
